FAERS Safety Report 5809464-X (Version None)
Quarter: 2008Q3

REPORT INFORMATION
  Report Type: 
  Country: None (occurrence: None)
  Receive Date: 20080709
  Receipt Date: 20080401
  Transmission Date: 20090109
  Serious: Yes (Hospitalization, Other)
  Sender: FDA-Public Use
  Company Number: 2008AP000723

PATIENT
  Age: 41 Year
  Sex: Female

DRUGS (5)
  1. HALOPERIDOL [Suspect]
     Indication: AGITATION
  2. LORAZEPAM [Concomitant]
  3. PHENYTOIN [Concomitant]
  4. ACYCLOVIR [Concomitant]
  5. BENZTROPINE MESYLATE [Concomitant]

REACTIONS (19)
  - ABULIA [None]
  - BETA HAEMOLYTIC STREPTOCOCCAL INFECTION [None]
  - BRADYCARDIA [None]
  - CATATONIA [None]
  - CONSCIOUSNESS FLUCTUATING [None]
  - DYSARTHRIA [None]
  - ECHOLALIA [None]
  - ENCEPHALITIS [None]
  - FULL BLOOD COUNT DECREASED [None]
  - HALLUCINATION, VISUAL [None]
  - HYPOPNOEA [None]
  - MUTISM [None]
  - NEGATIVISM [None]
  - NEUROLEPTIC MALIGNANT SYNDROME [None]
  - PNEUMONIA ASPIRATION [None]
  - PSYCHOMOTOR HYPERACTIVITY [None]
  - PULMONARY EMBOLISM [None]
  - TOOTH FRACTURE [None]
  - URINARY TRACT INFECTION [None]
